FAERS Safety Report 4948940-9 (Version None)
Quarter: 2006Q1

REPORT INFORMATION
  Report Type: 
  Country: None (occurrence: None)
  Receive Date: 20060315
  Receipt Date: 20060228
  Transmission Date: 20060701
  Serious: Yes (Hospitalization, Other)
  Sender: FDA-Public Use
  Company Number: USA0508106784

PATIENT
  Age: 66 Year
  Sex: Female

DRUGS (6)
  1. HUMULIN (HUMAN INSULIN (RDNA ORIGIN) [Suspect]
     Indication: DIABETES MELLITUS
  2. NORVASC [Concomitant]
  3. LIPITOR [Concomitant]
  4. LASIX [Concomitant]
  5. SYNTHROID (LEVOTHRYOXINE SODIUM) [Concomitant]
  6. ZOLOFT [Concomitant]

REACTIONS (1)
  - NO ADVERSE EFFECT [None]
